FAERS Safety Report 22049146 (Version 2)
Quarter: 2023Q1

REPORT INFORMATION
  Report Type: Report from Study
  Country: CA (occurrence: CA)
  Receive Date: 20230301
  Receipt Date: 20230313
  Transmission Date: 20230418
  Serious: No
  Sender: FDA-Public Use
  Company Number: CA-ABBVIE-4322027

PATIENT
  Sex: Female

DRUGS (1)
  1. RINVOQ [Suspect]
     Active Substance: UPADACITINIB
     Indication: Rheumatoid arthritis
     Dosage: 15 MG
     Route: 048
     Dates: start: 20210406

REACTIONS (5)
  - Cognitive disorder [Unknown]
  - Headache [Unknown]
  - Skin discomfort [Unknown]
  - Skin striae [Unknown]
  - Spinal pain [Unknown]
